FAERS Safety Report 8470646-2 (Version None)
Quarter: 2012Q2

REPORT INFORMATION
  Report Type: 
  Country: None (occurrence: None)
  Receive Date: 20120627
  Receipt Date: 20120625
  Transmission Date: 20120825
  Serious: No
  Sender: FDA-Public Use
  Company Number: PHHY2012LB053899

PATIENT
  Sex: Male

DRUGS (7)
  1. TASIGNA [Suspect]
     Indication: CHRONIC MYELOID LEUKAEMIA
     Dosage: 800 MG, DAILY
     Route: 048
     Dates: start: 20120501
  2. ASPIRIN [Concomitant]
     Dosage: 1 DF, UNK
     Route: 048
     Dates: start: 20050101
  3. TENORMIN [Concomitant]
     Dosage: 1 DF, Q12H
     Route: 048
     Dates: start: 20050101
  4. GLUCOPHAGE [Concomitant]
     Dosage: 1 DF, DAY
     Route: 048
     Dates: start: 20080101
  5. VASCOR [Concomitant]
     Dosage: 1 DF, UNK
     Route: 048
     Dates: start: 20050101
  6. CARDULAR [Concomitant]
     Dosage: 1 DF, UNK
     Route: 048
     Dates: start: 20050101
  7. AMARYL [Concomitant]
     Dosage: 1 DF, UNK
     Route: 048
     Dates: start: 20080101

REACTIONS (3)
  - HEADACHE [None]
  - MYALGIA [None]
  - DECREASED APPETITE [None]
